FAERS Safety Report 20454319 (Version 1)
Quarter: 2022Q1

REPORT INFORMATION
  Report Type: Spontaneous
  Country: FR (occurrence: FR)
  Receive Date: 20220210
  Receipt Date: 20220210
  Transmission Date: 20220423
  Serious: Yes (Hospitalization)
  Sender: FDA-Public Use
  Company Number: None

PATIENT
  Age: 71 Year
  Sex: Male
  Weight: 72 kg

DRUGS (1)
  1. OXALIPLATIN [Suspect]
     Active Substance: OXALIPLATIN
     Indication: Oesophageal adenocarcinoma
     Route: 041
     Dates: start: 20210223, end: 20210223

REACTIONS (3)
  - Infusion related hypersensitivity reaction [Recovered/Resolved]
  - Off label use [Unknown]
  - Allergy test positive [Recovered/Resolved]

NARRATIVE: CASE EVENT DATE: 20210223
